FAERS Safety Report 19361739 (Version 1)
Quarter: 2021Q2

REPORT INFORMATION
  Report Type: Report from Study
  Country: None (occurrence: US)
  Receive Date: 20210602
  Receipt Date: 20210602
  Transmission Date: 20210717
  Serious: No
  Sender: FDA-Public Use
  Company Number: US-MDD US OPERATIONS-USW202006-001222

PATIENT
  Age: 83 Year
  Sex: Female
  Weight: 62.59 kg

DRUGS (18)
  1. LEVOTHYROXINE SODIUM. [Concomitant]
     Active Substance: LEVOTHYROXINE SODIUM
     Dosage: 100 MCG, 1 TABLET ON AN EMPTY STOMACH IN THE MORNING ONCE A DAY FOR 90 DAYS
     Route: 048
  2. DEXILANT [Concomitant]
     Active Substance: DEXLANSOPRAZOLE
     Dosage: 60 MG, 1 CAPSULE ONCE A DAY FOR 30 DAYS
     Route: 048
  3. SINGULAIR [Concomitant]
     Active Substance: MONTELUKAST SODIUM
     Dosage: 10 MG, 1 TABLET ONCE A DAY IN EVENING ORALLY FOR 90 DAYS
     Route: 048
  4. MIRTAZAPINE. [Concomitant]
     Active Substance: MIRTAZAPINE
     Dosage: 15 MG, 1 TABLET ONCE A DAY AT BEDTIME FOR 30 DAYS
     Route: 048
  5. LEXAPRO [Concomitant]
     Active Substance: ESCITALOPRAM OXALATE
     Dosage: 20 MG, 1/2 TABLET ONCE A DAY
     Route: 048
  6. TIGAN [Concomitant]
     Active Substance: TRIMETHOBENZAMIDE HYDROCHLORIDE
     Indication: PROPHYLAXIS OF NAUSEA AND VOMITING
     Dates: start: 20200606
  7. RESTASIS [Concomitant]
     Active Substance: CYCLOSPORINE
     Dosage: 1 DROP EACH EYE TWICE A DAY FOR 30 DAYS
  8. VENTOLIN HFA [Concomitant]
     Active Substance: ALBUTEROL SULFATE
     Dosage: 90 BASE MCG/ACT TWO PUFFS AS NEEDED EVERY 6 HOURS FOR 30 DAYS
  9. DUOPA [Concomitant]
     Active Substance: CARBIDOPA\LEVODOPA
     Dosage: 4.63?20 MG/ML AS DIRECTED VIA ENTERAL ROUTE CONTINUOUS
  10. VITAMIN D [Concomitant]
     Active Substance: VITAMIN D NOS
     Dosage: 2000 UNIT 1 TABLET ONCE A DAY FOR 30 DAYS
     Route: 048
  11. ZYRTEC [Concomitant]
     Active Substance: CETIRIZINE HYDROCHLORIDE
     Dosage: 10 MG, 1 TABLET ONCE A DAY FOR 30 DAYS
     Route: 048
  12. APOKYN [Suspect]
     Active Substance: APOMORPHINE HYDROCHLORIDE
     Indication: PARKINSON^S DISEASE
     Dosage: AT 10:00 HOURS
     Route: 058
     Dates: start: 20200609
  13. ALPRAZOLAM. [Concomitant]
     Active Substance: ALPRAZOLAM
     Route: 048
  14. NASACORT ALLERGY 24HR [Concomitant]
     Active Substance: TRIAMCINOLONE ACETONIDE
     Dosage: ONE PUFFS IN EACH NOSTRILS ONCE A DAY FOR 30 DAYS
  15. LEVODOPA [Concomitant]
     Active Substance: LEVODOPA
     Dosage: UNKNOWN
  16. TRAZODONE HYDROCHLORIDE. [Concomitant]
     Active Substance: TRAZODONE HYDROCHLORIDE
     Dosage: 50 MG, 0.5 TABLET ONCE A DAY AT BEDTIME FOR 90 DAYS
     Route: 048
  17. PROLIA [Concomitant]
     Active Substance: DENOSUMAB
     Dosage: 60 MG/ML AS DIRECTED EVERY 6 MONTHS SUBCUTANEOUSLY
     Route: 058
  18. TYLENOL [Concomitant]
     Active Substance: ACETAMINOPHEN
     Dosage: 500 MG, FOUR TIMES DAILY FOR 90 DAYS

REACTIONS (5)
  - Dizziness [Recovered/Resolved]
  - Blood pressure fluctuation [Unknown]
  - Heart rate decreased [Unknown]
  - Orthostatic hypotension [Recovered/Resolved]
  - Muscular weakness [Recovered/Resolved]

NARRATIVE: CASE EVENT DATE: 20200609
